FAERS Safety Report 21232163 (Version 1)
Quarter: 2022Q3

REPORT INFORMATION
  Report Type: Spontaneous
  Country: US (occurrence: None)
  Receive Date: 20220818
  Receipt Date: 20220818
  Transmission Date: 20221026
  Serious: Yes (Hospitalization, Other)
  Sender: FDA-Public Use
  Company Number: None

PATIENT
  Age: 76 Year
  Sex: Male
  Weight: 84.6 kg

DRUGS (1)
  1. EVUSHELD [Suspect]
     Active Substance: CILGAVIMAB\TIXAGEVIMAB
     Indication: Heart transplant
     Dosage: OTHER FREQUENCY : ONE TIME;?
     Route: 030

REACTIONS (3)
  - Fatigue [None]
  - Anaemia [None]
  - Hyperglycaemia [None]

NARRATIVE: CASE EVENT DATE: 20220520
